FAERS Safety Report 20373379 (Version 3)
Quarter: 2025Q2

REPORT INFORMATION
  Report Type: Spontaneous
  Country: US (occurrence: US)
  Receive Date: 20220125
  Receipt Date: 20250606
  Transmission Date: 20250716
  Serious: No
  Sender: HISAMITSU PHARMACEUTICAL CO., INC.
  Company Number: US-HISAMITSU PHARMACEUTICAL CO., INC.-2021-NOV-US003868

PATIENT
  Age: 47 Year
  Sex: Male

DRUGS (6)
  1. SECUADO [Suspect]
     Active Substance: ASENAPINE
     Indication: Schizophrenia
     Dosage: 5.7 MG, 1/WEEK
     Route: 062
  2. SECUADO [Suspect]
     Active Substance: ASENAPINE
     Route: 062
  3. SECUADO [Suspect]
     Active Substance: ASENAPINE
     Route: 062
  4. SECUADO [Suspect]
     Active Substance: ASENAPINE
     Dosage: 5.7 MG, 2/WEEK
     Route: 062
     Dates: start: 202007
  5. VITAMIN B12 [Concomitant]
     Active Substance: CYANOCOBALAMIN
     Indication: Product used for unknown indication
     Route: 065
  6. FISH OIL [Concomitant]
     Active Substance: FISH OIL
     Indication: Product used for unknown indication
     Route: 065

REACTIONS (6)
  - Decreased appetite [Not Recovered/Not Resolved]
  - Distractibility [Not Recovered/Not Resolved]
  - Therapeutic product effect incomplete [Not Recovered/Not Resolved]
  - Hypersomnia [Not Recovered/Not Resolved]
  - Fatigue [Not Recovered/Not Resolved]
  - Wrong technique in product usage process [Recovered/Resolved]

NARRATIVE: CASE EVENT DATE: 20200101
